FAERS Safety Report 9718042 (Version 1)
Quarter: 2013Q4

REPORT INFORMATION
  Report Type: Spontaneous
  Country: US (occurrence: US)
  Receive Date: 20131125
  Receipt Date: 20131125
  Transmission Date: 20140711
  Serious: No
  Sender: FDA-Public Use
  Company Number: US-VIVUS-2013V1000460

PATIENT
  Age: 63 Year
  Sex: Female
  Weight: 80.81 kg

DRUGS (5)
  1. QSYMIA 7.5MG/46MG [Suspect]
     Indication: OBESITY
     Route: 048
     Dates: start: 201304, end: 201304
  2. QSYMIA 3.75MG/23MG [Suspect]
     Indication: OBESITY
     Dates: start: 201303, end: 201303
  3. LISINOPRIL [Concomitant]
     Indication: HYPERTENSION
  4. CRESTOR [Concomitant]
     Indication: BLOOD CHOLESTEROL
  5. IBUPROFEN [Concomitant]
     Indication: ARTHRITIS
     Dosage: 800-1600MG

REACTIONS (6)
  - Paraesthesia [Recovered/Resolved]
  - Chest discomfort [Recovered/Resolved]
  - Anger [Recovered/Resolved]
  - Palpitations [Recovered/Resolved]
  - Headache [Recovered/Resolved]
  - Drug dispensing error [Recovered/Resolved]
